FAERS Safety Report 12806176 (Version 3)
Quarter: 2016Q4

REPORT INFORMATION
  Report Type: Report from Study
  Country: PH (occurrence: PH)
  Receive Date: 20161004
  Receipt Date: 20161129
  Transmission Date: 20170207
  Serious: Yes (Death, Hospitalization, Other)
  Sender: FDA-Public Use
  Company Number: PHHY2015PH066404

PATIENT
  Age: 78 Year
  Sex: Female

DRUGS (7)
  1. GLIVEC [Suspect]
     Active Substance: IMATINIB MESYLATE
     Indication: GASTROINTESTINAL STROMAL TUMOUR
     Dosage: 400 MG, QD (4 DF)
     Route: 048
     Dates: start: 20150521, end: 201603
  2. DOLCET [Concomitant]
     Indication: PAIN
     Dosage: 500 MG, TID
     Route: 048
     Dates: start: 201607
  3. METFORMIN [Concomitant]
     Active Substance: METFORMIN HYDROCHLORIDE
     Indication: BLOOD GLUCOSE INCREASED
     Dosage: 500 MG, QD
     Route: 048
  4. LOSARTAN. [Concomitant]
     Active Substance: LOSARTAN
     Indication: HYPERTENSION
     Dosage: 50 MG, QD
     Route: 048
  5. GLIVEC [Suspect]
     Active Substance: IMATINIB MESYLATE
     Dosage: 800 MG, QD
     Route: 048
     Dates: start: 201605, end: 201608
  6. MORPHINE SULFATE. [Concomitant]
     Active Substance: MORPHINE SULFATE
     Indication: ABDOMINAL PAIN UPPER
     Dosage: 5 MG, TID
     Route: 048
     Dates: start: 201607
  7. RIVOTRIL [Concomitant]
     Active Substance: CLONAZEPAM
     Indication: INSOMNIA
     Dosage: 0.5 MG, QD (HS)
     Route: 048
     Dates: start: 201607

REACTIONS (26)
  - Decreased appetite [Fatal]
  - Gastrointestinal stromal tumour [Fatal]
  - Urinary incontinence [Unknown]
  - Unresponsive to stimuli [Unknown]
  - Chromaturia [Unknown]
  - Pyrexia [Unknown]
  - Abdominal pain [Unknown]
  - Dizziness [Not Recovered/Not Resolved]
  - Anaemia [Unknown]
  - Nausea [Not Recovered/Not Resolved]
  - Diabetes mellitus [Fatal]
  - Gastrointestinal haemorrhage [Unknown]
  - Jaundice [Unknown]
  - Haemoglobin decreased [Recovered/Resolved]
  - Bedridden [Unknown]
  - Anal incontinence [Unknown]
  - Hepatomegaly [Fatal]
  - Malaise [Fatal]
  - Hypertension [Fatal]
  - Oesophageal neoplasm [Fatal]
  - Pneumonia [Fatal]
  - Vomiting [Recovered/Resolved]
  - Insomnia [Fatal]
  - Abdominal pain upper [Fatal]
  - Fatigue [Fatal]
  - Urticaria [Recovering/Resolving]

NARRATIVE: CASE EVENT DATE: 20150521
